FAERS Safety Report 16016746 (Version 1)
Quarter: 2019Q1

REPORT INFORMATION
  Report Type: Spontaneous
  Country: US (occurrence: US)
  Receive Date: 20190228
  Receipt Date: 20190228
  Transmission Date: 20190418
  Serious: Yes (Other)
  Sender: FDA-Public Use
  Company Number: US-ASTRAZENECA-2019SE31455

PATIENT
  Age: 92 Year
  Sex: Male

DRUGS (4)
  1. ELIQUIS [Suspect]
     Active Substance: APIXABAN
     Route: 065
  2. BRILINTA [Suspect]
     Active Substance: TICAGRELOR
     Route: 048
  3. ELIQUIS [Suspect]
     Active Substance: APIXABAN
     Route: 065
  4. BRILINTA [Suspect]
     Active Substance: TICAGRELOR
     Route: 048

REACTIONS (1)
  - Gastrointestinal haemorrhage [Unknown]
